FAERS Safety Report 13409460 (Version 3)
Quarter: 2022Q3

REPORT INFORMATION
  Report Type: Spontaneous
  Country: US (occurrence: US)
  Receive Date: 20170406
  Receipt Date: 20220912
  Transmission Date: 20221026
  Serious: No
  Sender: FDA-Public Use
  Company Number: US-JNJFOC-20161009090

PATIENT
  Age: 9 Year
  Sex: Male

DRUGS (4)
  1. RISPERDAL [Suspect]
     Active Substance: RISPERIDONE
     Indication: Disturbance in social behaviour
     Route: 048
     Dates: start: 20050224, end: 20050618
  2. RISPERDAL [Suspect]
     Active Substance: RISPERIDONE
     Indication: Schizophrenia
     Route: 048
     Dates: end: 20050713
  3. RISPERDAL [Suspect]
     Active Substance: RISPERIDONE
     Indication: Hallucinations, mixed
     Dosage: ABOUT 6 MONTHS
     Route: 048
     Dates: start: 20050201, end: 20050601
  4. RISPERDAL [Suspect]
     Active Substance: RISPERIDONE
     Indication: Psychotic disorder

REACTIONS (5)
  - Obesity [Unknown]
  - Emotional distress [Unknown]
  - Palpitations [Unknown]
  - Chest pain [Unknown]
  - Gynaecomastia [Unknown]

NARRATIVE: CASE EVENT DATE: 20050713
